FAERS Safety Report 8286890-3 (Version None)
Quarter: 2012Q2

REPORT INFORMATION
  Report Type: 
  Country: None (occurrence: None)
  Receive Date: 20120416
  Receipt Date: 20120406
  Transmission Date: 20120825
  Serious: Yes (Hospitalization)
  Sender: FDA-Public Use
  Company Number: US-BAYER-2012-034705

PATIENT
  Age: 28 Year
  Sex: Female
  Weight: 61.224 kg

DRUGS (1)
  1. YAZ [Suspect]
     Dosage: UNK
     Dates: start: 20090701, end: 20101101

REACTIONS (2)
  - CHOLECYSTITIS CHRONIC [None]
  - GALLBLADDER DISORDER [None]
